FAERS Safety Report 4522585-7 (Version None)
Quarter: 2004Q4

REPORT INFORMATION
  Report Type: 
  Country: None (occurrence: None)
  Receive Date: 20041207
  Receipt Date: 20041119
  Transmission Date: 20050328
  Serious: Yes (Hospitalization, Disabling)
  Sender: FDA-Public Use
  Company Number: GBS041115987

PATIENT
  Weight: 3 kg

DRUGS (2)
  1. ZYPREXA [Suspect]
  2. VENLAFAXINE HCL [Concomitant]

REACTIONS (5)
  - DRUG EXPOSURE DURING PREGNANCY [None]
  - FEEDING PROBLEM IN NEWBORN [None]
  - LETHARGY [None]
  - MOTOR DYSFUNCTION [None]
  - NEONATAL DISORDER [None]
